FAERS Safety Report 13191217 (Version 1)
Quarter: 2017Q1

REPORT INFORMATION
  Report Type: Spontaneous
  Country: ES (occurrence: ES)
  Receive Date: 20170207
  Receipt Date: 20170207
  Transmission Date: 20170428
  Serious: Yes (Hospitalization)
  Sender: FDA-Public Use
  Company Number: ES-ROCHE-1887106

PATIENT
  Age: 48 Year
  Sex: Male
  Weight: 71.46 kg

DRUGS (3)
  1. OSELTAMIVIR [Suspect]
     Active Substance: OSELTAMIVIR
     Indication: INFLUENZA
     Route: 048
     Dates: start: 20170108, end: 20170112
  2. PF-06463922 (ALK/ROS1 INHIBITOR) [Concomitant]
     Indication: NON-SMALL CELL LUNG CANCER
     Dosage: 21 DAY CYCLE
     Route: 048
     Dates: start: 20160113, end: 20170108
  3. LEVOFLOXACIN. [Suspect]
     Active Substance: LEVOFLOXACIN
     Indication: INFLUENZA
     Route: 048
     Dates: start: 20170108, end: 20170114

REACTIONS (4)
  - Lipase increased [Unknown]
  - Alanine aminotransferase increased [Unknown]
  - Aspartate aminotransferase increased [Unknown]
  - Amylase increased [Unknown]

NARRATIVE: CASE EVENT DATE: 20170117
